FAERS Safety Report 13362313 (Version 1)
Quarter: 2017Q1

REPORT INFORMATION
  Report Type: Spontaneous
  Country: US (occurrence: US)
  Receive Date: 20170322
  Receipt Date: 20170322
  Transmission Date: 20170429
  Serious: Yes (Life-Threatening, Hospitalization, Disabling, Other)
  Sender: FDA-Public Use
  Company Number: None

PATIENT
  Age: 36 Year
  Sex: Female
  Weight: 99 kg

DRUGS (10)
  1. CITALOPRAM [Concomitant]
     Active Substance: CITALOPRAM HYDROBROMIDE
  2. CIPRO [Suspect]
     Active Substance: CIPROFLOXACIN HYDROCHLORIDE
     Indication: SYSTEMIC LUPUS ERYTHEMATOSUS
     Route: 048
     Dates: start: 20100615
  3. METOPROLOL. [Concomitant]
     Active Substance: METOPROLOL
  4. BAYER81 [Concomitant]
  5. RANITIDINE. [Concomitant]
     Active Substance: RANITIDINE
  6. LEVAQUIN [Suspect]
     Active Substance: LEVOFLOXACIN
  7. ATORVASTATIN [Concomitant]
     Active Substance: ATORVASTATIN
  8. BURPROPION HCL XL [Concomitant]
  9. GABAPENTIN. [Concomitant]
     Active Substance: GABAPENTIN
  10. EQUATE [Concomitant]
     Active Substance: UNSPECIFIED INGREDIENT

REACTIONS (8)
  - Myocardial infarction [None]
  - Depression [None]
  - Impaired healing [None]
  - Cellulitis [None]
  - Fear [None]
  - Blister [None]
  - Myalgia [None]
  - Anxiety [None]

NARRATIVE: CASE EVENT DATE: 20100615
